FAERS Safety Report 23808923 (Version 1)
Quarter: 2024Q2

REPORT INFORMATION
  Report Type: Spontaneous
  Country: CA (occurrence: CA)
  Receive Date: 20240502
  Receipt Date: 20240502
  Transmission Date: 20240716
  Serious: Yes (Other)
  Sender: FDA-Public Use
  Company Number: CA-IGSA-BIG0024502

PATIENT
  Age: 61 Year
  Sex: Male
  Weight: 73 kg

DRUGS (1)
  1. ALBUMIN (HUMAN) [Suspect]
     Active Substance: ALBUMIN HUMAN
     Indication: Uveal melanoma
     Dosage: 0.1 MILLILITER, Q.WK.
     Route: 042

REACTIONS (3)
  - Fatigue [Unknown]
  - Pyrexia [Unknown]
  - Back pain [Recovered/Resolved]
